FAERS Safety Report 8831629 (Version 6)
Quarter: 2014Q1

REPORT INFORMATION
  Report Type: Spontaneous
  Country: US (occurrence: US)
  Receive Date: 20121009
  Receipt Date: 20140221
  Transmission Date: 20141002
  Serious: Yes (Hospitalization, Other)
  Sender: FDA-Public Use
  Company Number: US-009507513-1210USA000798

PATIENT
  Sex: Female
  Weight: 45.35 kg

DRUGS (3)
  1. FOSAMAX [Suspect]
     Indication: OSTEOPOROSIS
     Dosage: 70 MG, QW
     Route: 048
     Dates: start: 19971222
  2. FOSAMAX [Suspect]
     Dosage: UNK QW
     Route: 048
     Dates: end: 20100601
  3. FOSAMAX PLUS D [Suspect]
     Dosage: 70 MG/2800 IU, QW
     Route: 048
     Dates: end: 2010

REACTIONS (34)
  - Femur fracture [Recovered/Resolved with Sequelae]
  - Intramedullary rod insertion [Unknown]
  - Hypokalaemia [Unknown]
  - Anaemia [Unknown]
  - Procoagulant therapy [Unknown]
  - Protein S deficiency [Unknown]
  - Skeletal injury [Unknown]
  - Rib fracture [Unknown]
  - Hypertension [Unknown]
  - Hysterectomy [Unknown]
  - Hypercholesterolaemia [Unknown]
  - Nephrolithiasis [Unknown]
  - Protein S deficiency [Unknown]
  - Deep vein thrombosis [Not Recovered/Not Resolved]
  - Haemorrhoids [Unknown]
  - Phlebitis superficial [Unknown]
  - Colitis [Unknown]
  - Sciatica [Unknown]
  - Bursitis [Recovering/Resolving]
  - Rheumatoid arthritis [Unknown]
  - Pain [Unknown]
  - Infection [Unknown]
  - Fracture malunion [Unknown]
  - Arteriosclerosis coronary artery [Unknown]
  - Skeletal injury [Unknown]
  - Bronchitis bacterial [Unknown]
  - Oedema [Not Recovered/Not Resolved]
  - Tendonitis [Unknown]
  - Nausea [Unknown]
  - Gastrooesophageal reflux disease [Unknown]
  - Gastritis [Unknown]
  - Pain in extremity [Unknown]
  - Headache [Unknown]
  - Myalgia [Unknown]
